FAERS Safety Report 5124999-3 (Version None)
Quarter: 2006Q4

REPORT INFORMATION
  Report Type: 
  Country: None (occurrence: None)
  Receive Date: 20061011
  Receipt Date: 20060914
  Transmission Date: 20070319
  Serious: Yes (Disabling)
  Sender: FDA-Public Use
  Company Number: FR-GLAXOSMITHKLINE-B0438542A

PATIENT
  Age: 86 Year
  Sex: Male
  Weight: 80 kg

DRUGS (3)
  1. ARIXTRA [Suspect]
     Indication: DEEP VEIN THROMBOSIS
     Dosage: 7.5MG PER DAY
     Route: 058
  2. ENANTONE [Concomitant]
     Indication: PROSTATE CANCER
  3. COZAAR [Concomitant]
     Dosage: 50MG PER DAY
     Route: 048

REACTIONS (3)
  - ECCHYMOSIS [None]
  - HAEMATOMA [None]
  - SKIN NECROSIS [None]
